FAERS Safety Report 19100104 (Version 2)
Quarter: 2021Q2

REPORT INFORMATION
  Report Type: Spontaneous
  Country: JP (occurrence: JP)
  Receive Date: 20210407
  Receipt Date: 20210614
  Transmission Date: 20210717
  Serious: Yes (Death, Life-Threatening, Hospitalization, Other)
  Sender: FDA-Public Use
  Company Number: JP-009507513-2010JPN003070J

PATIENT
  Age: 75 Year
  Sex: Male
  Weight: 67 kg

DRUGS (5)
  1. ABRAXANE [Suspect]
     Active Substance: PACLITAXEL
     Indication: LUNG SQUAMOUS CELL CARCINOMA STAGE IV
     Dosage: 170 MILLIGRAM, QW
     Route: 041
     Dates: start: 20201022, end: 20201022
  2. KEYTRUDA [Suspect]
     Active Substance: PEMBROLIZUMAB
     Indication: LUNG SQUAMOUS CELL CARCINOMA STAGE IV
     Dosage: 200 MILLIGRAM, Q3W
     Route: 041
     Dates: start: 20201022, end: 20201022
  3. CARBOPLATIN. [Suspect]
     Active Substance: CARBOPLATIN
     Indication: LUNG SQUAMOUS CELL CARCINOMA STAGE IV
     Dosage: 500 MILLIGRAM, Q3W
     Route: 041
     Dates: start: 20201022, end: 20201022
  4. RABEPRAZOLE NA [Suspect]
     Active Substance: RABEPRAZOLE SODIUM
     Indication: PROPHYLAXIS AGAINST GASTROINTESTINAL ULCER
     Dosage: 10 MILLIGRAM, QD
     Route: 048
     Dates: start: 20201019, end: 20210112
  5. NAIXAN [NAPROXEN] [Suspect]
     Active Substance: NAPROXEN
     Indication: TUMOUR ASSOCIATED FEVER
     Dosage: 100 MILLIGRAM, TID
     Route: 048
     Dates: start: 20201019, end: 20210112

REACTIONS (6)
  - Immune-mediated enterocolitis [Recovering/Resolving]
  - Pyrexia [Recovering/Resolving]
  - Immune-mediated enterocolitis [Recovering/Resolving]
  - Pneumonia [Recovering/Resolving]
  - Malignant neoplasm progression [Fatal]
  - Rash erythematous [Recovering/Resolving]

NARRATIVE: CASE EVENT DATE: 20201023
